FAERS Safety Report 9217741 (Version 2)
Quarter: 2013Q2

REPORT INFORMATION
  Report Type: Spontaneous
  Country: IT (occurrence: IT)
  Receive Date: 20130408
  Receipt Date: 20130613
  Transmission Date: 20140414
  Serious: Yes (Hospitalization)
  Sender: FDA-Public Use
  Company Number: IT-BAYER-2013-042480

PATIENT
  Age: 86 Year
  Sex: Female

DRUGS (7)
  1. ACETYLSALICYLIC ACID({=100 MG) [Suspect]
     Indication: MYOCARDIAL ISCHAEMIA
     Dosage: DAILY DOSE 100 MG
     Route: 048
     Dates: start: 20000101, end: 20130305
  2. TENORMIN [Concomitant]
     Indication: HYPERTENSION
     Dosage: DAILY DOSE 25 MG
     Route: 048
  3. ANTRA [Concomitant]
     Indication: GASTRITIS
     Dosage: DAILY DOSE 20 MG
     Route: 048
  4. MIRTAZAPINE ACTAVIS [Concomitant]
     Indication: HEADACHE
     Dosage: DAILY DOSE 30 MG
     Route: 048
  5. KARVEA [Concomitant]
     Indication: HYPERTENSION
     Dosage: DAILY DOSE 75 MG
     Route: 048
  6. MADOPAR [Concomitant]
     Indication: TREMOR
     Dosage: DAILY DOSE 125 MG
     Route: 048
  7. SIVASTIN [Concomitant]
     Indication: HYPERCHOLESTEROLAEMIA
     Dosage: DAILY DOSE 20 MG
     Route: 048

REACTIONS (4)
  - Haematuria [Recovered/Resolved]
  - Urinary bladder haemorrhage [Recovered/Resolved]
  - Bladder spasm [Recovered/Resolved]
  - Anuria [Recovered/Resolved]
